FAERS Safety Report 9264734 (Version 3)
Quarter: 2013Q3

REPORT INFORMATION
  Report Type: Report from Study
  Country: BR (occurrence: BR)
  Receive Date: 20130501
  Receipt Date: 20130910
  Transmission Date: 20140515
  Serious: Yes (Hospitalization)
  Sender: FDA-Public Use
  Company Number: BR-ROCHE-1218009

PATIENT
  Sex: Female
  Weight: 98 kg

DRUGS (2)
  1. OMALIZUMAB [Suspect]
     Indication: ASTHMA
     Dosage: EVERY 30 DAYS FROM FIVE YEARS AGO
     Route: 058
  2. OMALIZUMAB [Suspect]
     Route: 058
     Dates: start: 20130417

REACTIONS (8)
  - Asthmatic crisis [Recovered/Resolved]
  - Dyspnoea [Unknown]
  - Chest pain [Unknown]
  - Hypersensitivity [Unknown]
  - Fatigue [Unknown]
  - Local swelling [Recovered/Resolved]
  - Abasia [Recovered/Resolved]
  - Blood immunoglobulin E increased [Unknown]
